FAERS Safety Report 4505232-X (Version None)
Quarter: 2004Q4

REPORT INFORMATION
  Report Type: 
  Country: None (occurrence: None)
  Receive Date: 20041015
  Receipt Date: 20040702
  Transmission Date: 20050328
  Serious: Yes (Other)
  Sender: FDA-Public Use
  Company Number: 2004045199

PATIENT
  Age: 76 Year
  Sex: Male
  Weight: 60.782 kg

DRUGS (9)
  1. NEURONTIN [Suspect]
     Indication: LUNG DISORDER
     Dosage: ORAL
     Route: 048
     Dates: start: 20040601, end: 20040601
  2. BUPROPION HYDROCHLORIDE [Concomitant]
  3. TRAMADOL HCL [Concomitant]
  4. TIMOLOL MALEATE [Concomitant]
  5. LOSARTAN POTASSIUM [Concomitant]
  6. HERBAL PREPARATION (HERBAL PREPARATION) [Concomitant]
  7. ENZYMES (ENZYMES) [Concomitant]
  8. CENTRYM SILVER (ASCORBIC ACID, CALCIUM, MINERALS NOS, RETINOL, TOCOPHE [Concomitant]
  9. ALL OTHER THERAPEUTIC PRODUCTS (ALL OTHER THERAPEUTIC PRODUCTS) [Concomitant]

REACTIONS (5)
  - HAEMOPTYSIS [None]
  - HEAD DISCOMFORT [None]
  - HEADACHE [None]
  - NEUROLOGICAL SYMPTOM [None]
  - PAIN IN EXTREMITY [None]
